FAERS Safety Report 19519943 (Version 1)
Quarter: 2021Q3

REPORT INFORMATION
  Report Type: Spontaneous
  Country: US (occurrence: US)
  Receive Date: 20210712
  Receipt Date: 20210712
  Transmission Date: 20211014
  Serious: Yes (Disabling)
  Sender: FDA-Public Use
  Company Number: None

PATIENT
  Age: 44 Year
  Sex: Female
  Weight: 55.8 kg

DRUGS (5)
  1. VITAMIN D [Concomitant]
     Active Substance: VITAMIN D NOS
  2. VITAMIN C [Concomitant]
     Active Substance: ASCORBIC ACID
  3. METHYLPREDNISOLONE. [Suspect]
     Active Substance: METHYLPREDNISOLONE
     Indication: HYPERSENSITIVITY
     Route: 048
     Dates: start: 20201225, end: 20201231
  4. MAGNESIUM AND ZINC [Concomitant]
  5. VITEX [Concomitant]

REACTIONS (7)
  - Myalgia [None]
  - Hepatitis acute [None]
  - Liver disorder [None]
  - Dehydration [None]
  - Adverse drug reaction [None]
  - Influenza like illness [None]
  - Diarrhoea [None]

NARRATIVE: CASE EVENT DATE: 20210209
